FAERS Safety Report 5020849-4 (Version None)
Quarter: 2006Q2

REPORT INFORMATION
  Report Type: 
  Country: None (occurrence: None)
  Receive Date: 20060602
  Receipt Date: 20060525
  Transmission Date: 20061013
  Serious: Yes (Death)
  Sender: FDA-Public Use
  Company Number: PHO-2006-018

PATIENT
  Age: 63 Year
  Sex: Male

DRUGS (3)
  1. PHOTOFRIN [Suspect]
     Indication: PERITONEAL MESOTHELIOMA MALIGNANT
     Dosage: 2.5 MG/KG IV
     Route: 042
     Dates: start: 19970729
  2. LOPRESSOR [Concomitant]
  3. ASPIRIN [Concomitant]

REACTIONS (11)
  - ACUTE RESPIRATORY DISTRESS SYNDROME [None]
  - ANAEMIA [None]
  - BACTERIAL SEPSIS [None]
  - BRADYCARDIA [None]
  - FLUID OVERLOAD [None]
  - GENERALISED OEDEMA [None]
  - HEPATIC FAILURE [None]
  - HYPOTENSION [None]
  - METABOLIC ACIDOSIS [None]
  - RENAL FAILURE [None]
  - TRICUSPID VALVE INCOMPETENCE [None]
